FAERS Safety Report 4560944-7 (Version None)
Quarter: 2005Q1

REPORT INFORMATION
  Report Type: 
  Country: None (occurrence: None)
  Receive Date: 20050126
  Receipt Date: 20040220
  Transmission Date: 20050727
  Serious: No
  Sender: FDA-Public Use
  Company Number: US-BRISTOL-MYERS SQUIBB COMPANY-12514139

PATIENT
  Age: 65 Year
  Sex: Male
  Weight: 93 kg

DRUGS (9)
  1. GLUCOPHAGE [Suspect]
     Indication: DIABETES MELLITUS
     Route: 048
     Dates: start: 19930101
  2. INDERAL LA [Concomitant]
  3. HYZAAR [Concomitant]
  4. DEMADEX [Concomitant]
  5. NIACIN [Concomitant]
  6. SELENIUM TRACE METAL ADDITIVE [Concomitant]
  7. PAXIL [Concomitant]
  8. XANAX [Concomitant]
  9. PRAVACHOL [Concomitant]

REACTIONS (1)
  - BLOOD URINE PRESENT [None]
